APPROVED DRUG PRODUCT: BETAMETHASONE VALERATE
Active Ingredient: BETAMETHASONE VALERATE
Strength: EQ 0.1% BASE
Dosage Form/Route: LOTION;TOPICAL
Application: A070052 | Product #001 | TE Code: AB
Applicant: SENORES PHARMACEUTICALS INC
Approved: Jul 31, 1985 | RLD: No | RS: No | Type: RX